FAERS Safety Report 9487148 (Version 2)
Quarter: 2013Q3

REPORT INFORMATION
  Report Type: Spontaneous
  Country: JP (occurrence: JP)
  Receive Date: 20130829
  Receipt Date: 20130904
  Transmission Date: 20140515
  Serious: Yes (Other)
  Sender: FDA-Public Use
  Company Number: JP-ASTRAZENECA-2013SE65119

PATIENT
  Age: 61 Year
  Sex: Male

DRUGS (3)
  1. CASODEX [Suspect]
     Route: 048
     Dates: start: 201011
  2. TAXOTERE [Suspect]
     Route: 041
     Dates: start: 201103, end: 201307
  3. ESTRACYT [Suspect]
     Route: 048
     Dates: start: 201103, end: 201307

REACTIONS (3)
  - Bone marrow failure [Unknown]
  - Decreased appetite [Unknown]
  - Malaise [Unknown]
